FAERS Safety Report 19580665 (Version 1)
Quarter: 2021Q3

REPORT INFORMATION
  Report Type: Spontaneous
  Country: IN (occurrence: IN)
  Receive Date: 20210719
  Receipt Date: 20210719
  Transmission Date: 20211014
  Serious: Yes (Other)
  Sender: FDA-Public Use
  Company Number: IN-ASTRAZENECA-2021A625610

PATIENT
  Sex: Female

DRUGS (12)
  1. ARIMIDEX [Suspect]
     Active Substance: ANASTROZOLE
     Route: 048
  2. XGEVA [Concomitant]
     Active Substance: DENOSUMAB
     Route: 062
  3. DEPURA [Concomitant]
     Active Substance: CHOLECALCIFEROL
     Dosage: VITAMIN D3 60000 IU ONCE A WEEK
     Route: 048
  4. SELBO [Concomitant]
     Route: 048
  5. LIVOGEN Z [Concomitant]
     Route: 048
  6. FASLODEX [Suspect]
     Active Substance: FULVESTRANT
     Route: 030
     Dates: start: 202010
  7. PALBACE [Suspect]
     Active Substance: PALBOCICLIB
     Dosage: 100 MG MONTHLY15 ON 7 OFF
     Route: 048
     Dates: start: 202010
  8. RANTAC [Concomitant]
     Active Substance: RANITIDINE HYDROCHLORIDE
     Route: 048
  9. K BIND [Concomitant]
     Active Substance: CALCIUM POLYSTYRENE SULFONATE
     Dosage: ONE SACHET WITH HALF GLASS OF WATER
     Route: 048
  10. SODANET [Concomitant]
     Route: 048
  11. CONCOR AM [Concomitant]
     Route: 048
  12. SEPTASTERIL [Concomitant]
     Route: 048

REACTIONS (2)
  - Toxicity to various agents [Unknown]
  - Metastases to bone [Unknown]

NARRATIVE: CASE EVENT DATE: 2020
